FAERS Safety Report 4956464-8 (Version None)
Quarter: 2006Q1

REPORT INFORMATION
  Report Type: 
  Country: None (occurrence: None)
  Receive Date: 20060328
  Receipt Date: 20060328
  Transmission Date: 20060701
  Serious: Yes (Death, Hospitalization)
  Sender: FDA-Public Use
  Company Number: None

PATIENT
  Sex: Female
  Weight: 58.9676 kg

DRUGS (1)
  1. NITROFURANTOIN (MONOHYDRATE/MACROCRYSTALS) [Suspect]
     Indication: URINARY TRACT INFECTION
     Dosage: 100 MG    BID X 5D THEN ONE QD   PO
     Route: 048
     Dates: start: 20060202, end: 20060220

REACTIONS (3)
  - DYSPNOEA [None]
  - IDIOPATHIC PULMONARY FIBROSIS [None]
  - MALAISE [None]
